FAERS Safety Report 8193619 (Version 6)
Quarter: 2014Q1

REPORT INFORMATION
  Report Type: Report from Study
  Country: JP (occurrence: JP)
  Receive Date: 20111021
  Receipt Date: 20140117
  Transmission Date: 20141002
  Serious: Yes (Death, Life-Threatening, Hospitalization, Disabling)
  Sender: FDA-Public Use
  Company Number: JP-EISAI INC-E7389-01550-SPO-JP

PATIENT
  Age: 50 Year
  Sex: Female
  Weight: 58 kg

DRUGS (20)
  1. HALAVEN [Suspect]
     Indication: BREAST CANCER RECURRENT
     Route: 041
     Dates: start: 20110830, end: 20110920
  2. HALAVEN [Suspect]
     Indication: METASTASES TO BREAST
  3. HALAVEN [Suspect]
     Indication: METASTASES TO BREAST
  4. HALAVEN [Suspect]
     Indication: METASTASES TO LYMPH NODES
  5. HALAVEN [Suspect]
     Indication: METASTASES TO LYMPH NODES
  6. HALAVEN [Suspect]
     Indication: METASTASES TO LIVER
  7. HALAVEN [Suspect]
     Indication: METASTASES TO BONE
  8. HALAVEN [Suspect]
     Indication: METASTASES TO CENTRAL NERVOUS SYSTEM
  9. FEMARA [Concomitant]
     Indication: BREAST CANCER RECURRENT
  10. ALOXI [Concomitant]
     Indication: PROPHYLAXIS
  11. DECADRON [Concomitant]
     Indication: PROPHYLAXIS
  12. GASTER [Concomitant]
     Indication: PROPHYLAXIS
  13. POLARAMINE [Concomitant]
     Indication: PROPHYLAXIS
  14. RINDERON [Concomitant]
  15. PURSENNID [Concomitant]
  16. MAGNESIUM OXIDE [Concomitant]
  17. MEILAX [Concomitant]
  18. ZOMETA [Concomitant]
     Indication: PROPHYLAXIS
  19. MODACIN [Concomitant]
     Indication: PROPHYLAXIS
  20. OMEGACIN [Concomitant]
     Indication: PROPHYLAXIS

REACTIONS (7)
  - Radiation pneumonitis [Recovering/Resolving]
  - Hypoxia [Recovering/Resolving]
  - Thrombotic thrombocytopenic purpura [Recovered/Resolved]
  - Thrombocytopenia [Recovered/Resolved]
  - Interstitial lung disease [Recovering/Resolving]
  - Muscular weakness [Not Recovered/Not Resolved]
  - Malignant neoplasm progression [Fatal]
